FAERS Safety Report 4804772-3 (Version None)
Quarter: 2005Q4

REPORT INFORMATION
  Report Type: 
  Country: None (occurrence: None)
  Receive Date: 20051017
  Receipt Date: 20051010
  Transmission Date: 20060501
  Serious: Yes (Hospitalization)
  Sender: FDA-Public Use
  Company Number: 2005-133491-NL

PATIENT
  Age: 70 Year
  Sex: Male

DRUGS (6)
  1. MIRTAZAPINE [Suspect]
     Indication: DEPRESSION
     Dosage: 15 MG ORAL
     Route: 048
     Dates: start: 20050914, end: 20050918
  2. LISINOPRIL [Concomitant]
  3. BACLOFEN [Concomitant]
  4. ALLOPURINOL [Concomitant]
  5. CO-AMILOFRUSE [Concomitant]
  6. ATORVASTATIN [Concomitant]

REACTIONS (2)
  - CONVULSION [None]
  - FALL [None]
